FAERS Safety Report 5735920-9 (Version None)
Quarter: 2008Q2

REPORT INFORMATION
  Report Type: 
  Country: None (occurrence: None)
  Receive Date: 20080509
  Receipt Date: 20080506
  Transmission Date: 20081010
  Serious: Yes (Other)
  Sender: FDA-Public Use
  Company Number: A0724705A

PATIENT
  Age: 59 Year
  Sex: Female

DRUGS (1)
  1. UREA PEROXIDE [Suspect]
     Indication: CERUMEN REMOVAL
     Dosage: 5 DROP(S) / AURAL
     Route: 001
     Dates: start: 20080423

REACTIONS (2)
  - HYPOACUSIS [None]
  - HYPOAESTHESIA FACIAL [None]
